FAERS Safety Report 8000198-2 (Version None)
Quarter: 2011Q4

REPORT INFORMATION
  Report Type: 
  Country: None (occurrence: None)
  Receive Date: 20111220
  Receipt Date: 20111220
  Transmission Date: 20120403
  Serious: Yes (Other)
  Sender: FDA-Public Use
  Company Number: None

PATIENT
  Age: 69 Year
  Sex: Male
  Weight: 81.6475 kg

DRUGS (5)
  1. TOOTHPASTE (FORMULATION UNKNOWN) (TOOTHPASTE) [Suspect]
     Indication: DENTAL CARE
     Dosage: DENTAL
     Route: 004
  2. DEXTRANASE+GLUCOSE OXIDASE+LACTOPEROXIDE+LYSOZYME+MUTANASE (DEXTRA+GLU [Suspect]
     Indication: DENTAL CARE
     Dosage: DENTAL
     Route: 004
  3. FUROSEMIDE [Concomitant]
  4. DOXYCYCLINE [Concomitant]
  5. SIMAVASTATIN [Concomitant]

REACTIONS (1)
  - TONGUE NEOPLASM [None]
